FAERS Safety Report 23751624 (Version 1)
Quarter: 2024Q2

REPORT INFORMATION
  Report Type: Spontaneous
  Country: US (occurrence: None)
  Receive Date: 20240416
  Receipt Date: 20240416
  Transmission Date: 20240716
  Serious: No
  Sender: FDA-Public Use
  Company Number: None

PATIENT
  Age: 66 Year
  Sex: Male
  Weight: 130.5 kg

DRUGS (1)
  1. TADALAFIL [Suspect]
     Active Substance: TADALAFIL

REACTIONS (2)
  - Vitreous floaters [None]
  - Therapy cessation [None]

NARRATIVE: CASE EVENT DATE: 20240304
